FAERS Safety Report 18625409 (Version 3)
Quarter: 2021Q2

REPORT INFORMATION
  Report Type: Report from Study
  Country: None (occurrence: CA)
  Receive Date: 20201217
  Receipt Date: 20210521
  Transmission Date: 20210717
  Serious: Yes (Hospitalization)
  Sender: FDA-Public Use
  Company Number: CA-ABBVIE-20K-028-3693901-00

PATIENT
  Age: 90 Year
  Sex: Female

DRUGS (5)
  1. COVID?19 VACCINE NOS. [Concomitant]
     Active Substance: COVID-19 VACCINE NOS
     Indication: COVID-19 IMMUNISATION
     Dosage: COVPBMRNA
     Route: 065
     Dates: start: 20210114, end: 20210114
  2. RINVOQ [Suspect]
     Active Substance: UPADACITINIB
     Indication: RHEUMATOID ARTHRITIS
     Route: 048
     Dates: start: 20200529
  3. RINVOQ [Suspect]
     Active Substance: UPADACITINIB
     Route: 048
  4. HM (CALCIUM CARBONATE\HERBALS\SODIUM BICARBONATE) [Suspect]
     Active Substance: CALCIUM CARBONATE\HERBALS\SODIUM BICARBONATE
     Indication: PRODUCT USED FOR UNKNOWN INDICATION
     Route: 065
  5. COVID?19 VACCINE NOS. [Concomitant]
     Active Substance: COVID-19 VACCINE NOS
     Dosage: COVPBMRNA
     Route: 065
     Dates: start: 20210415, end: 20210415

REACTIONS (10)
  - Nausea [Unknown]
  - Therapeutic product effect incomplete [Unknown]
  - Mobility decreased [Unknown]
  - Pain [Not Recovered/Not Resolved]
  - Arthralgia [Unknown]
  - Fall [Recovered/Resolved]
  - Electric shock sensation [Unknown]
  - Rheumatoid arthritis [Unknown]
  - Pelvic fracture [Unknown]
  - Pelvic pain [Not Recovered/Not Resolved]

NARRATIVE: CASE EVENT DATE: 2020
